FAERS Safety Report 4381038-X (Version None)
Quarter: 2004Q2

REPORT INFORMATION
  Report Type: 
  Country: None (occurrence: None)
  Receive Date: 20040601
  Receipt Date: 20040322
  Transmission Date: 20050107
  Serious: No
  Sender: FDA-Public Use
  Company Number: FABR-10516

PATIENT
  Age: 62 Year
  Sex: Male

DRUGS (4)
  1. FABRAZYME [Suspect]
     Indication: FABRY'S DISEASE
     Dosage: 70 MG Q2WKS IV
     Route: 042
     Dates: start: 20040122
  2. LASIX [Concomitant]
  3. ACCUPRIL [Concomitant]
  4. K-DUR 10 [Concomitant]

REACTIONS (1)
  - RASH [None]
